FAERS Safety Report 19856916 (Version 1)
Quarter: 2021Q3

REPORT INFORMATION
  Report Type: Spontaneous
  Country: DE (occurrence: DE)
  Receive Date: 20210920
  Receipt Date: 20210920
  Transmission Date: 20211014
  Serious: Yes (Hospitalization, Other)
  Sender: FDA-Public Use
  Company Number: DE-009507513-2109DEU003022

PATIENT
  Age: 56 Year
  Sex: Male
  Weight: 93 kg

DRUGS (12)
  1. CIPROFLOXACIN. [Concomitant]
     Active Substance: CIPROFLOXACIN
     Dosage: UNK, 750 MG, 1?0?1?0
  2. PANTOPRAZOLE [Concomitant]
     Active Substance: PANTOPRAZOLE
     Dosage: UNK, 40 MG, 1?0?1?0
  3. PEMBROLIZUMAB. [Suspect]
     Active Substance: PEMBROLIZUMAB
     Dosage: UNK, SCHEME
  4. VITAMIN D [COLECALCIFEROL] [Concomitant]
     Active Substance: CHOLECALCIFEROL
     Dosage: UNK, 20000 IE, SCHEME
  5. RAMIPRIL. [Concomitant]
     Active Substance: RAMIPRIL
     Dosage: UNK, 2.5 MG, 1?0?1?0
  6. MACROGOL;POTASSIUM;SODIUM CARBONATE ANHYDROUS;SODIUM CHLORIDE [Concomitant]
     Dosage: UNK, 1?0?0?0
  7. DEXAMETHASONE. [Concomitant]
     Active Substance: DEXAMETHASONE
     Dosage: UNK, 4 MG, 1?0?0.5?0
  8. METAMIZOLE [Concomitant]
     Active Substance: METAMIZOLE
     Dosage: UNK, 40 GGT, 1?1?1?1
  9. SPIRONOLACTON [Concomitant]
     Active Substance: SPIRONOLACTONE
     Dosage: UNK, 50 MG, 0.5?0?0?0
  10. FOLIC ACID. [Concomitant]
     Active Substance: FOLIC ACID
     Dosage: UNK, 0.4 MG, 1?0?0?0
  11. FENTANYL. [Concomitant]
     Active Substance: FENTANYL
     Dosage: UNK, 25 MICROGRAM, SCHEME
  12. TORASEMID [Concomitant]
     Active Substance: TORSEMIDE
     Dosage: UNK, 10 MG, 1?0.5?0?0

REACTIONS (11)
  - General physical health deterioration [Unknown]
  - Electrocardiogram abnormal [Unknown]
  - Urinary incontinence [Unknown]
  - Systemic infection [Unknown]
  - Condition aggravated [Unknown]
  - Dyspnoea [Unknown]
  - Ileus [Unknown]
  - Anaemia [Unknown]
  - Abdominal distension [Unknown]
  - Abdominal pain [Unknown]
  - Oedema peripheral [Unknown]
